FAERS Safety Report 23028941 (Version 1)
Quarter: 2023Q4

REPORT INFORMATION
  Report Type: Spontaneous
  Country: PL (occurrence: PL)
  Receive Date: 20231004
  Receipt Date: 20231004
  Transmission Date: 20240110
  Serious: Yes (Other)
  Sender: FDA-Public Use
  Company Number: PL-JNJFOC-20230945306

PATIENT
  Age: 67 Year
  Sex: Female

DRUGS (3)
  1. DEXAMETHASONE [Suspect]
     Active Substance: DEXAMETHASONE
     Indication: Plasma cell myeloma
     Route: 065
  2. VELCADE [Suspect]
     Active Substance: BORTEZOMIB
     Indication: Plasma cell myeloma
     Route: 065
     Dates: end: 20220228
  3. CYCLOPHOSPHAMIDE [Suspect]
     Active Substance: CYCLOPHOSPHAMIDE
     Indication: Plasma cell myeloma
     Route: 065

REACTIONS (8)
  - Thrombocytopenia [Unknown]
  - Plasma cell myeloma recurrent [Unknown]
  - Anaemia [Unknown]
  - Drug resistance [Unknown]
  - Peripheral swelling [Unknown]
  - Exercise tolerance decreased [Unknown]
  - Chronic fatigue syndrome [Unknown]
  - Off label use [Unknown]
